FAERS Safety Report 8513031-7 (Version None)
Quarter: 2012Q3

REPORT INFORMATION
  Report Type: 
  Country: None (occurrence: None)
  Receive Date: 20120716
  Receipt Date: 20120706
  Transmission Date: 20120928
  Serious: Yes (Hospitalization)
  Sender: FDA-Public Use
  Company Number: US-ASTRAZENECA-2012SE35550

PATIENT
  Age: 64 Year
  Sex: Female
  Weight: 41.7 kg

DRUGS (7)
  1. LISINOPRIL [Concomitant]
  2. METOPROLOL TARTRATE [Concomitant]
  3. SYMBICORT [Suspect]
     Indication: CHRONIC OBSTRUCTIVE PULMONARY DISEASE
     Dosage: SOMETIMES ONCE A DAY OR TWICE A DAY BUT NOT ALWAYS THE SAME DOSE
     Route: 055
  4. SYMBICORT [Suspect]
     Dosage: 2 PUFFS TWO TIMES A DAY
     Route: 055
  5. PARFFON FORTE [Concomitant]
     Indication: MUSCLE RELAXANT THERAPY
  6. LORTAB [Concomitant]
  7. VALIUM [Concomitant]

REACTIONS (5)
  - DRUG DOSE OMISSION [None]
  - MYOCARDIAL INFARCTION [None]
  - OFF LABEL USE [None]
  - INTENTIONAL DRUG MISUSE [None]
  - CEREBROVASCULAR ACCIDENT [None]
